FAERS Safety Report 20672192 (Version 9)
Quarter: 2022Q3

REPORT INFORMATION
  Report Type: Spontaneous
  Country: DE (occurrence: GB)
  Receive Date: 20220405
  Receipt Date: 20220830
  Transmission Date: 20221027
  Serious: Yes (Death, Congenital Anomaly, Other)
  Sender: FDA-Public Use
  Company Number: None

PATIENT
  Age: 23 Year
  Sex: Male

DRUGS (6)
  1. PREGABALIN [Suspect]
     Active Substance: PREGABALIN
     Indication: Product used for unknown indication
     Dosage: UNK, TABLET UNCOATED
     Route: 048
     Dates: start: 20170317
  2. PREGABALIN [Suspect]
     Active Substance: PREGABALIN
     Dosage: UNK, CAPSULE
     Route: 048
     Dates: start: 20170317
  3. ZOPICLONE [Suspect]
     Active Substance: ZOPICLONE
     Indication: Product used for unknown indication
     Dosage: UNK, 048OVERDOSE, ABUSEZOPICLONE
     Route: 048
  4. ZOPICLONE [Suspect]
     Active Substance: ZOPICLONE
     Dosage: UNK, 048OVERDOSE, ABUSEZOPICLONE
     Route: 065
  5. COCAINE [Suspect]
     Active Substance: COCAINE
     Indication: Product used for unknown indication
     Dosage: UNK
     Route: 048
  6. DIAZEPAM [Suspect]
     Active Substance: DIAZEPAM
     Indication: Product used for unknown indication
     Dosage: UNK, 048OVERDOSE, ABUSEDIAZEPAM
     Route: 048
     Dates: start: 20170317

REACTIONS (12)
  - Alcohol interaction [Fatal]
  - Cardiac failure [Fatal]
  - Loss of consciousness [Fatal]
  - Fall [Fatal]
  - Gait disturbance [Fatal]
  - Toxicity to various agents [Fatal]
  - Snoring [Fatal]
  - Incoherent [Fatal]
  - Overdose [Fatal]
  - Drug interaction [Fatal]
  - Drug abuse [Fatal]
  - Loss of consciousness [Fatal]

NARRATIVE: CASE EVENT DATE: 20170317
